FAERS Safety Report 5921903-2 (Version None)
Quarter: 2008Q4

REPORT INFORMATION
  Report Type: 
  Country: None (occurrence: None)
  Receive Date: 20081017
  Receipt Date: 20081007
  Transmission Date: 20090506
  Serious: Yes (Hospitalization, Congenital Anomaly)
  Sender: FDA-Public Use
  Company Number: US-AMGEN-US300432

PATIENT
  Weight: 2.23 kg

DRUGS (13)
  1. ENBREL [Suspect]
     Indication: RHEUMATOID ARTHRITIS
     Route: 064
     Dates: start: 20070920
  2. VITAMIN TAB [Concomitant]
     Route: 064
  3. FOLIC ACID [Concomitant]
     Route: 064
  4. CAFFEINE [Concomitant]
     Route: 064
  5. VICODIN [Concomitant]
     Route: 064
  6. IMURAN [Concomitant]
     Route: 064
  7. PREDNISONE TAB [Concomitant]
     Route: 064
  8. PLAQUENIL [Concomitant]
     Route: 064
  9. ZANTAC [Concomitant]
     Route: 064
  10. AMBIEN [Concomitant]
     Route: 064
  11. TYLENOL (CAPLET) [Concomitant]
     Route: 064
  12. BENADRYL [Concomitant]
     Route: 064
  13. INFLUENZA VACCINE [Concomitant]
     Route: 064

REACTIONS (4)
  - ATRIAL SEPTAL DEFECT [None]
  - CONGENITAL MITRAL VALVE INCOMPETENCE [None]
  - JAUNDICE [None]
  - TRISOMY 21 [None]
